FAERS Safety Report 15627116 (Version 2)
Quarter: 2018Q4

REPORT INFORMATION
  Report Type: Spontaneous
  Country: US (occurrence: US)
  Receive Date: 20181116
  Receipt Date: 20181129
  Transmission Date: 20190205
  Serious: No
  Sender: FDA-Public Use
  Company Number: US-GLAXOSMITHKLINE-US2018204523

PATIENT
  Age: 53 Year
  Sex: Female

DRUGS (1)
  1. ABREVA [Suspect]
     Active Substance: DOCOSANOL
     Indication: ORAL HERPES
     Dosage: UNK UNK, BID
     Route: 061
     Dates: start: 20181021, end: 20181107

REACTIONS (4)
  - Product use issue [Unknown]
  - Product complaint [Unknown]
  - Product physical consistency issue [Unknown]
  - Inappropriate schedule of product administration [Unknown]
